FAERS Safety Report 11143584 (Version 1)
Quarter: 2015Q2

REPORT INFORMATION
  Report Type: Report from Study
  Country: DE (occurrence: DE)
  Receive Date: 20150526
  Receipt Date: 20150526
  Transmission Date: 20150821
  Serious: Yes (Hospitalization, Other)
  Sender: FDA-Public Use
  Company Number: DE-ROCHE-1579792

PATIENT

DRUGS (9)
  1. CAPECITABINE. [Suspect]
     Active Substance: CAPECITABINE
     Indication: GASTROOESOPHAGEAL CANCER
     Dosage: FROM DAY 1 TO 14 IN 21 DAYS CYCLE
     Route: 048
  2. CLEMASTIN [Concomitant]
     Active Substance: CLEMASTINE
     Indication: PROPHYLAXIS OF NAUSEA AND VOMITING
  3. FOSAPREPITANT [Concomitant]
     Active Substance: FOSAPREPITANT
     Indication: PROPHYLAXIS OF NAUSEA AND VOMITING
  4. GRANISETRON [Concomitant]
     Active Substance: GRANISETRON
     Indication: PROPHYLAXIS OF NAUSEA AND VOMITING
     Route: 065
  5. OXALIPLATIN. [Suspect]
     Active Substance: OXALIPLATIN
     Indication: GASTROOESOPHAGEAL CANCER
     Dosage: INFUSED OVER 120 MINUTES ON DAY 1.
     Route: 065
  6. UREA. [Concomitant]
     Active Substance: UREA
     Dosage: TOPICALLY
     Route: 065
  7. DEXAMETHASONE. [Concomitant]
     Active Substance: DEXAMETHASONE
     Indication: PROPHYLAXIS OF NAUSEA AND VOMITING
  8. EPIRUBICIN [Suspect]
     Active Substance: EPIRUBICIN
     Indication: GASTROOESOPHAGEAL CANCER
     Dosage: SHORT INFUSION OVER 30 MINUTES
     Route: 065
  9. LOPERAMIDE [Concomitant]
     Active Substance: LOPERAMIDE
     Indication: DIARRHOEA

REACTIONS (14)
  - Leukopenia [Unknown]
  - Laryngospasm [Unknown]
  - Acute kidney injury [Unknown]
  - Palmar-plantar erythrodysaesthesia syndrome [Unknown]
  - Oropharyngeal spasm [Unknown]
  - Nausea [Unknown]
  - Diarrhoea [Unknown]
  - Haematotoxicity [Unknown]
  - Thrombocytopenia [Unknown]
  - Neurological symptom [Unknown]
  - Gastrointestinal disorder [Unknown]
  - Thrombosis [Unknown]
  - Stomatitis [Unknown]
  - Myocardial ischaemia [Unknown]
